FAERS Safety Report 7118180-6 (Version None)
Quarter: 2010Q4

REPORT INFORMATION
  Report Type: 
  Country: None (occurrence: None)
  Receive Date: 20101123
  Receipt Date: 20101119
  Transmission Date: 20110411
  Serious: Yes (Other)
  Sender: FDA-Public Use
  Company Number: US-BRISTOL-MYERS SQUIBB COMPANY-15396450

PATIENT
  Age: 60 Year
  Sex: Female
  Weight: 84 kg

DRUGS (3)
  1. ABILIFY [Suspect]
     Dosage: FOR A WEEK TO 10 DAYS
  2. LEXAPRO [Concomitant]
  3. CELEBREX [Concomitant]

REACTIONS (1)
  - ENCEPHALITIS [None]
